FAERS Safety Report 21800365 (Version 3)
Quarter: 2023Q4

REPORT INFORMATION
  Report Type: Report from Study
  Country: CN (occurrence: None)
  Receive Date: 20221230
  Receipt Date: 20231026
  Transmission Date: 20240110
  Serious: Yes (Hospitalization)
  Sender: FDA-Public Use
  Company Number: 2022A411686

PATIENT
  Age: 65 Year
  Sex: Male

DRUGS (28)
  1. DURVALUMAB [Suspect]
     Active Substance: DURVALUMAB
     Indication: Oesophageal squamous cell carcinoma
     Route: 042
     Dates: start: 20220803, end: 20220803
  2. DURVALUMAB [Suspect]
     Active Substance: DURVALUMAB
     Indication: Oesophageal squamous cell carcinoma
     Route: 042
     Dates: start: 20221017, end: 20221017
  3. DURVALUMAB [Suspect]
     Active Substance: DURVALUMAB
     Indication: Oesophageal squamous cell carcinoma
     Route: 042
     Dates: start: 20221117, end: 20221117
  4. DURVALUMAB [Suspect]
     Active Substance: DURVALUMAB
     Indication: Oesophageal squamous cell carcinoma
     Route: 042
     Dates: start: 20221222, end: 20221222
  5. DURVALUMAB [Suspect]
     Active Substance: DURVALUMAB
     Indication: Oesophageal squamous cell carcinoma
     Route: 042
     Dates: start: 20230316, end: 20230316
  6. CISPLATIN [Suspect]
     Active Substance: CISPLATIN
     Indication: Oesophageal squamous cell carcinoma
     Route: 042
     Dates: start: 20220804, end: 20220804
  7. CISPLATIN [Suspect]
     Active Substance: CISPLATIN
     Indication: Oesophageal squamous cell carcinoma
     Route: 042
     Dates: start: 20220805, end: 20220805
  8. CISPLATIN [Suspect]
     Active Substance: CISPLATIN
     Indication: Oesophageal squamous cell carcinoma
     Route: 042
     Dates: start: 20220806, end: 20220806
  9. CISPLATIN [Suspect]
     Active Substance: CISPLATIN
     Indication: Oesophageal squamous cell carcinoma
     Route: 042
     Dates: start: 20221017, end: 20221017
  10. CISPLATIN [Suspect]
     Active Substance: CISPLATIN
     Indication: Oesophageal squamous cell carcinoma
     Route: 042
     Dates: start: 20221018, end: 20221018
  11. CISPLATIN [Suspect]
     Active Substance: CISPLATIN
     Indication: Oesophageal squamous cell carcinoma
     Route: 042
     Dates: start: 20221019, end: 20221019
  12. CISPLATIN [Suspect]
     Active Substance: CISPLATIN
     Indication: Oesophageal squamous cell carcinoma
     Route: 042
     Dates: start: 20221117, end: 20221117
  13. CISPLATIN [Suspect]
     Active Substance: CISPLATIN
     Indication: Oesophageal squamous cell carcinoma
     Route: 042
     Dates: start: 20221118, end: 20221118
  14. CISPLATIN [Suspect]
     Active Substance: CISPLATIN
     Indication: Oesophageal squamous cell carcinoma
     Route: 042
     Dates: start: 20221119, end: 20221119
  15. CISPLATIN [Suspect]
     Active Substance: CISPLATIN
     Indication: Oesophageal squamous cell carcinoma
     Route: 042
     Dates: start: 20221222, end: 20221222
  16. CISPLATIN [Suspect]
     Active Substance: CISPLATIN
     Indication: Oesophageal squamous cell carcinoma
     Route: 042
     Dates: start: 20221223, end: 20221223
  17. CISPLATIN [Suspect]
     Active Substance: CISPLATIN
     Indication: Oesophageal squamous cell carcinoma
     Route: 042
     Dates: start: 20221224, end: 20221224
  18. FLUOROURACIL [Suspect]
     Active Substance: FLUOROURACIL
     Indication: Oesophageal squamous cell carcinoma
     Route: 042
     Dates: start: 20220804, end: 20220806
  19. FLUOROURACIL [Suspect]
     Active Substance: FLUOROURACIL
     Indication: Oesophageal squamous cell carcinoma
     Route: 042
     Dates: start: 20220806, end: 20220808
  20. FLUOROURACIL [Suspect]
     Active Substance: FLUOROURACIL
     Indication: Oesophageal squamous cell carcinoma
     Route: 042
     Dates: start: 20221018, end: 20221020
  21. FLUOROURACIL [Suspect]
     Active Substance: FLUOROURACIL
     Indication: Oesophageal squamous cell carcinoma
     Route: 042
     Dates: start: 20221020, end: 20221022
  22. FLUOROURACIL [Suspect]
     Active Substance: FLUOROURACIL
     Indication: Oesophageal squamous cell carcinoma
     Route: 042
     Dates: start: 20221117, end: 20221119
  23. FLUOROURACIL [Suspect]
     Active Substance: FLUOROURACIL
     Indication: Oesophageal squamous cell carcinoma
     Route: 042
     Dates: start: 20221119, end: 20221121
  24. FLUOROURACIL [Suspect]
     Active Substance: FLUOROURACIL
     Indication: Oesophageal squamous cell carcinoma
     Route: 042
     Dates: start: 20221222, end: 20221224
  25. FLUOROURACIL [Suspect]
     Active Substance: FLUOROURACIL
     Indication: Oesophageal squamous cell carcinoma
     Route: 042
     Dates: start: 20221224, end: 20221226
  26. MORPHINE HYDROCHLORIDE SUPPOSITORY [Concomitant]
     Indication: Analgesic therapy
     Dosage: 20.0MG AS REQUIRED
     Route: 054
     Dates: start: 20220729, end: 202210
  27. LEVAMLODIPINE BESYLATE TABLETS [Concomitant]
     Indication: Hypertension
     Route: 048
     Dates: start: 2019
  28. HUMAN GRANULOCYTE COLONY STIMULATING FACTOR INJECTION [Concomitant]
     Indication: White blood cell count
     Route: 058
     Dates: start: 20221219, end: 20221219

REACTIONS (1)
  - Myelosuppression [Recovered/Resolved]

NARRATIVE: CASE EVENT DATE: 20221219
